FAERS Safety Report 7351628-0 (Version None)
Quarter: 2011Q1

REPORT INFORMATION
  Report Type: 
  Country: None (occurrence: None)
  Receive Date: 20110315
  Receipt Date: 20110307
  Transmission Date: 20110831
  Serious: Yes (Hospitalization)
  Sender: FDA-Public Use
  Company Number: US-BIOGENIDEC-2011BI002457

PATIENT
  Age: 50 Year
  Sex: Female
  Weight: 72 kg

DRUGS (1)
  1. TYSABRI [Suspect]
     Indication: MULTIPLE SCLEROSIS
     Route: 042
     Dates: start: 20100113

REACTIONS (7)
  - URINARY INCONTINENCE [None]
  - DIZZINESS [None]
  - BALANCE DISORDER [None]
  - DYSPNOEA [None]
  - DYSPHAGIA [None]
  - PNEUMONIA ASPIRATION [None]
  - INFECTION [None]
